FAERS Safety Report 5738158-4 (Version None)
Quarter: 2008Q2

REPORT INFORMATION
  Report Type: 
  Country: None (occurrence: None)
  Receive Date: 20080514
  Receipt Date: 20080507
  Transmission Date: 20081010
  Serious: Yes (Death, Other)
  Sender: FDA-Public Use
  Company Number: AT-PFIZER INC-2008024327

PATIENT
  Age: 55 Year
  Sex: Male

DRUGS (1)
  1. MEDRATE 2/4/16/32/100 [Suspect]
     Indication: SYSTEMIC LUPUS ERYTHEMATOSUS
     Dosage: DAILY DOSE:40MG

REACTIONS (3)
  - DISSEMINATED TUBERCULOSIS [None]
  - IMMUNOSUPPRESSION [None]
  - ORGAN FAILURE [None]
